FAERS Safety Report 7050225-4 (Version None)
Quarter: 2010Q4

REPORT INFORMATION
  Report Type: 
  Country: None (occurrence: None)
  Receive Date: 20101018
  Receipt Date: 20101012
  Transmission Date: 20110411
  Serious: Yes (Other)
  Sender: FDA-Public Use
  Company Number: US-PFIZER INC-2010093601

PATIENT
  Sex: Female
  Weight: 60 kg

DRUGS (3)
  1. CHANTIX [Suspect]
     Indication: SMOKING CESSATION THERAPY
     Dosage: UNK
     Route: 048
     Dates: start: 20080101
  2. CYMBALTA [Concomitant]
     Indication: DEPRESSION
     Dosage: UNK
  3. PREDNISONE [Concomitant]
     Indication: DYSPNOEA
     Dosage: UNK

REACTIONS (5)
  - ALCOHOL ABUSE [None]
  - DRUG ABUSE [None]
  - DRUG PRESCRIBING ERROR [None]
  - LOSS OF CONSCIOUSNESS [None]
  - OXYGEN SATURATION ABNORMAL [None]
